FAERS Safety Report 25319215 (Version 1)
Quarter: 2025Q2

REPORT INFORMATION
  Report Type: Spontaneous
  Country: US (occurrence: None)
  Receive Date: 20250514
  Receipt Date: 20250514
  Transmission Date: 20250716
  Serious: Yes (Life-Threatening, Disabling, Other)
  Sender: FDA-CTU
  Company Number: None

PATIENT
  Age: 39 Year
  Sex: Female
  Weight: 81 kg

DRUGS (2)
  1. SERTRALINE [Suspect]
     Active Substance: SERTRALINE HYDROCHLORIDE
     Indication: Anxiety
  2. ATENOLOL [Concomitant]
     Active Substance: ATENOLOL

REACTIONS (10)
  - Akathisia [None]
  - Suicidal ideation [None]
  - Anxiety [None]
  - Gastrointestinal disorder [None]
  - Food intolerance [None]
  - Weight decreased [None]
  - Therapy interrupted [None]
  - Feeling abnormal [None]
  - Sexual dysfunction [None]
  - Apathy [None]

NARRATIVE: CASE EVENT DATE: 20210505
